FAERS Safety Report 20906531 (Version 1)
Quarter: 2022Q2

REPORT INFORMATION
  Report Type: Spontaneous
  Country: US (occurrence: None)
  Receive Date: 20220602
  Receipt Date: 20220602
  Transmission Date: 20220721
  Serious: Yes (Hospitalization)
  Sender: FDA-Public Use
  Company Number: None

PATIENT
  Age: 19 Year
  Sex: Female

DRUGS (6)
  1. PULMOZYME [Suspect]
     Active Substance: DORNASE ALFA
     Indication: Cystic fibrosis lung
     Dosage: OTHER QUANTITY : 2.5MG/2.5ML;?FREQUENCY : AS DIRECTED;?
     Route: 055
     Dates: start: 20150814
  2. SULFAMETHOXAZOLE\TRIMETHOPRIM [Concomitant]
     Active Substance: SULFAMETHOXAZOLE\TRIMETHOPRIM
  3. SODIUM CHLOR SOL [Concomitant]
  4. TOBRAMYCIN [Concomitant]
     Active Substance: TOBRAMYCIN
  5. TRIKAFTA [Concomitant]
     Active Substance: ELEXACAFTOR\IVACAFTOR\TEZACAFTOR
  6. URSODIOL CAP [Concomitant]

REACTIONS (1)
  - Hospitalisation [None]

NARRATIVE: CASE EVENT DATE: 20220508
